FAERS Safety Report 8559468-1 (Version None)
Quarter: 2012Q3

REPORT INFORMATION
  Report Type: 
  Country: None (occurrence: None)
  Receive Date: 20120802
  Receipt Date: 20120723
  Transmission Date: 20120928
  Serious: Yes (Other)
  Sender: FDA-Public Use
  Company Number: BR-SANOFI-AVENTIS-2012SA052451

PATIENT
  Age: 9 Year
  Sex: Female
  Weight: 33 kg

DRUGS (2)
  1. HUMALOG [Concomitant]
     Route: 058
  2. LANTUS [Suspect]
     Dosage: DAILY IN MORNING
     Route: 058
     Dates: start: 20100101

REACTIONS (2)
  - HYPOTHYROIDISM [None]
  - INJECTION SITE HAEMATOMA [None]
